FAERS Safety Report 5250121-9 (Version None)
Quarter: 2007Q1

REPORT INFORMATION
  Report Type: 
  Country: None (occurrence: None)
  Receive Date: 20070228
  Receipt Date: 20060208
  Transmission Date: 20070707
  Serious: Yes (Other)
  Sender: FDA-Public Use
  Company Number: US-GLAXOSMITHKLINE-A0592874A

PATIENT
  Sex: Female

DRUGS (2)
  1. LAMICTAL [Suspect]
     Indication: LENNOX-GASTAUT SYNDROME
     Route: 048
  2. KEPPRA [Concomitant]

REACTIONS (1)
  - THROMBOCYTOPENIA [None]
